FAERS Safety Report 5289710-4 (Version None)
Quarter: 2007Q2

REPORT INFORMATION
  Report Type: 
  Country: None (occurrence: None)
  Receive Date: 20070406
  Receipt Date: 20070327
  Transmission Date: 20071010
  Serious: Yes (Other)
  Sender: FDA-Public Use
  Company Number: GB-ABBOTT-07P-167-0362304-00

PATIENT
  Weight: 64.1 kg

DRUGS (5)
  1. HUMIRA [Suspect]
     Indication: RHEUMATOID ARTHRITIS
     Route: 058
     Dates: start: 20070222, end: 20070222
  2. DIHYDROCODEINE BITARTRATE INJ [Concomitant]
     Indication: ANALGESIC EFFECT
     Route: 048
  3. PREDNISOLONE [Concomitant]
     Indication: INFLAMMATION
     Route: 048
  4. FLUOXETINE [Concomitant]
     Indication: ANXIETY
     Route: 048
  5. TRAMADOL HCL [Concomitant]
     Indication: ANALGESIC EFFECT
     Route: 048

REACTIONS (5)
  - ANAPHYLACTIC SHOCK [None]
  - CHEST DISCOMFORT [None]
  - PALPITATIONS [None]
  - PARAESTHESIA ORAL [None]
  - SWOLLEN TONGUE [None]
